FAERS Safety Report 10261564 (Version 1)
Quarter: 2014Q2

REPORT INFORMATION
  Report Type: Spontaneous
  Country: FR (occurrence: FR)
  Receive Date: 20140626
  Receipt Date: 20140626
  Transmission Date: 20141212
  Serious: Yes (Hospitalization)
  Sender: FDA-Public Use
  Company Number: PHHY2014FR077687

PATIENT
  Age: 13 Year
  Sex: Female

DRUGS (3)
  1. GLIVEC [Suspect]
     Indication: ACUTE LYMPHOCYTIC LEUKAEMIA
     Dosage: UNK UKN, UNK
     Route: 048
     Dates: start: 20140424, end: 20140514
  2. KIDROLASE [Suspect]
     Indication: ACUTE LYMPHOCYTIC LEUKAEMIA
     Dosage: UNK UKN, UNK
     Route: 042
     Dates: start: 20140418, end: 20140502
  3. INEXIUM//ESOMEPRAZOLE MAGNESIUM [Suspect]
     Dosage: UNK UKN, UNK
     Dates: end: 20140514

REACTIONS (2)
  - Coagulopathy [Not Recovered/Not Resolved]
  - Pancreatitis acute [Recovered/Resolved]
